FAERS Safety Report 8035480-6 (Version None)
Quarter: 2012Q1

REPORT INFORMATION
  Report Type: 
  Country: None (occurrence: None)
  Receive Date: 20120110
  Receipt Date: 20120110
  Transmission Date: 20120608
  Serious: No
  Sender: FDA-Public Use
  Company Number: None

PATIENT
  Sex: Female
  Weight: 32.8 kg

DRUGS (2)
  1. CISPLATIN [Suspect]
     Dosage: 30 MG
     Dates: end: 20120103
  2. TAXOL [Suspect]
     Dosage: 60 MG
     Dates: end: 20120103

REACTIONS (7)
  - HYPERPHAGIA [None]
  - DYSPHAGIA [None]
  - ODYNOPHAGIA [None]
  - PAIN [None]
  - OESOPHAGEAL STENOSIS [None]
  - ABDOMINAL PAIN UPPER [None]
  - ABDOMINAL PAIN [None]
